FAERS Safety Report 14672978 (Version 2)
Quarter: 2018Q2

REPORT INFORMATION
  Report Type: Spontaneous
  Country: US (occurrence: US)
  Receive Date: 20180323
  Receipt Date: 20180530
  Transmission Date: 20180711
  Serious: Yes (Other)
  Sender: FDA-Public Use
  Company Number: US-ACCORD-064665

PATIENT
  Age: 10 Year
  Sex: Female

DRUGS (1)
  1. FLUOROURACIL. [Suspect]
     Active Substance: FLUOROURACIL
     Indication: NASOPHARYNGEAL CANCER

REACTIONS (2)
  - Off label use [Unknown]
  - Cardiotoxicity [Recovering/Resolving]
